FAERS Safety Report 16589691 (Version 1)
Quarter: 2019Q3

REPORT INFORMATION
  Report Type: Report from Study
  Country: US (occurrence: US)
  Receive Date: 20190718
  Receipt Date: 20190718
  Transmission Date: 20191004
  Serious: No
  Sender: FDA-Public Use
  Company Number: US-SWEDISH ORPHAN BIOVITRUM-2019US0669

PATIENT
  Age: 7 Year
  Sex: Female
  Weight: 22.3 kg

DRUGS (3)
  1. LORTADINE [Concomitant]
     Active Substance: LORATADINE
     Indication: HYPERSENSITIVITY
     Dosage: AS NEEDED
     Route: 048
  2. KINERET [Suspect]
     Active Substance: ANAKINRA
     Indication: DEFICIENCY OF THE INTERLEUKIN-1 RECEPTOR ANTAGONIST
     Route: 058
     Dates: start: 20090716
  3. CETAPHIL NOS [Concomitant]
     Active Substance: AVOBENZONE\OCTOCRYLENE OR TRICLOSAN
     Indication: DRY SKIN

REACTIONS (3)
  - Ear infection [Recovered/Resolved]
  - Rash generalised [Recovered/Resolved]
  - Pyrexia [Recovered/Resolved]

NARRATIVE: CASE EVENT DATE: 20151212
